FAERS Safety Report 12075804 (Version 8)
Quarter: 2018Q1

REPORT INFORMATION
  Report Type: Spontaneous
  Country: US (occurrence: US)
  Receive Date: 20160214
  Receipt Date: 20180314
  Transmission Date: 20180508
  Serious: Yes (Hospitalization, Congenital Anomaly, Other)
  Sender: FDA-Public Use
  Company Number: PHEH2016US003263

PATIENT
  Sex: Male

DRUGS (3)
  1. ONDANSETRON [Suspect]
     Active Substance: ONDANSETRON
     Indication: FOETAL EXPOSURE DURING PREGNANCY
     Dosage: MOTHER DOSE: 4MG , PRN, AS NEEDED
     Route: 064
  2. ZOFRAN [Suspect]
     Active Substance: ONDANSETRON HYDROCHLORIDE
     Indication: FOETAL EXPOSURE DURING PREGNANCY
     Dosage: MOTHER DOSE : 4 MG, (PRN), AS NEEDED
     Route: 064
  3. ZOFRAN [Suspect]
     Active Substance: ONDANSETRON HYDROCHLORIDE
     Indication: FOETAL EXPOSURE DURING PREGNANCY
     Dosage: MOTHER DOSE: 8 MG, ONCE/SINGLE
     Route: 064

REACTIONS (33)
  - Foetal chromosome abnormality [Unknown]
  - Pain [Unknown]
  - Limb injury [Unknown]
  - Malignant pleural effusion [Unknown]
  - Developmental delay [Unknown]
  - Anhedonia [Unknown]
  - Dacryostenosis congenital [Unknown]
  - Upper respiratory tract infection [Unknown]
  - Foetal exposure during pregnancy [Unknown]
  - Constipation [Unknown]
  - Torticollis [Unknown]
  - Eyelid ptosis [Unknown]
  - Foot deformity [Unknown]
  - Cough [Unknown]
  - Atrioventricular septal defect [Unknown]
  - Otitis media [Unknown]
  - Failure to thrive [Unknown]
  - Anxiety [Unknown]
  - Rash [Unknown]
  - Rhinorrhoea [Unknown]
  - Heart disease congenital [Unknown]
  - Injury [Unknown]
  - Ear infection [Unknown]
  - Anaemia [Unknown]
  - Decreased appetite [Unknown]
  - Congenital anomaly [Unknown]
  - Atrial septal defect [Unknown]
  - Premature baby [Unknown]
  - Emotional distress [Unknown]
  - Dyspnoea [Unknown]
  - Nasal congestion [Unknown]
  - Pyrexia [Unknown]
  - Acute sinusitis [Unknown]

NARRATIVE: CASE EVENT DATE: 20131107
